FAERS Safety Report 11290911 (Version 1)
Quarter: 2015Q3

REPORT INFORMATION
  Report Type: Spontaneous
  Country: US (occurrence: US)
  Receive Date: 20150722
  Receipt Date: 20150722
  Transmission Date: 20151125
  Serious: No
  Sender: FDA-Public Use
  Company Number: US-UNITED THERAPEUTICS-UNT-2015-005094

PATIENT
  Sex: Male
  Weight: 112.2 kg

DRUGS (2)
  1. REMODULIN [Suspect]
     Active Substance: TREPROSTINIL
     Dosage: 0.0348 ?G/KG/MIN, CONTINUING
     Route: 058
     Dates: start: 20140926
  2. REMODULIN [Suspect]
     Active Substance: TREPROSTINIL
     Indication: PULMONARY HYPERTENSION
     Dosage: 0.026 ?G/KG/MIN, CONTINUING
     Route: 041
     Dates: start: 20140919

REACTIONS (3)
  - Injection site discharge [Unknown]
  - Nasopharyngitis [Unknown]
  - Infusion site infection [Unknown]
